FAERS Safety Report 10026816 (Version 1)
Quarter: 2014Q1

REPORT INFORMATION
  Report Type: Spontaneous
  Country: US (occurrence: US)
  Receive Date: 20140321
  Receipt Date: 20140321
  Transmission Date: 20141002
  Serious: No
  Sender: FDA-Public Use
  Company Number: US-SHIRE-US201400649

PATIENT
  Sex: 0

DRUGS (3)
  1. LIALDA [Suspect]
     Indication: COLITIS ULCERATIVE
     Dosage: 4.8 G, 1X/DAY:QD
     Route: 048
     Dates: start: 2013
  2. LIALDA [Suspect]
     Dosage: 2.4 G, 1X/DAY:QD
     Route: 048
  3. LIALDA [Suspect]
     Dosage: 1.2 G, 2X/DAY:BID
     Route: 048
     Dates: start: 2013

REACTIONS (2)
  - Diarrhoea [Recovering/Resolving]
  - Drug prescribing error [Not Recovered/Not Resolved]
